FAERS Safety Report 7631592-7 (Version None)
Quarter: 2011Q3

REPORT INFORMATION
  Report Type: 
  Country: None (occurrence: None)
  Receive Date: 20110725
  Receipt Date: 20110721
  Transmission Date: 20111222
  Serious: Yes (Other)
  Sender: FDA-Public Use
  Company Number: US-BRISTOL-MYERS SQUIBB COMPANY-15818529

PATIENT
  Age: 66 Year
  Sex: Male

DRUGS (3)
  1. ABILIFY [Suspect]
     Indication: DEPRESSION
     Dosage: AT NIGHT
     Route: 048
     Dates: start: 20110201
  2. SERTRALINE HYDROCHLORIDE [Suspect]
  3. WELLBUTRIN [Suspect]

REACTIONS (1)
  - MACULAR DEGENERATION [None]
